FAERS Safety Report 4777214-4 (Version None)
Quarter: 2005Q3

REPORT INFORMATION
  Report Type: 
  Country: None (occurrence: None)
  Receive Date: 20050922
  Receipt Date: 20050922
  Transmission Date: 20060218
  Serious: Yes (Hospitalization)
  Sender: FDA-Public Use
  Company Number: None

PATIENT
  Age: 39 Year
  Sex: Female
  Weight: 54.4316 kg

DRUGS (4)
  1. CYTOMEL [Suspect]
     Indication: FIBROMYALGIA
     Dosage: UP TO 300 MCG   PER DAY   PO
     Route: 048
  2. REGLAN [Concomitant]
  3. FLAGYL [Concomitant]
  4. TETRACYCLINE [Concomitant]

REACTIONS (2)
  - HYPERTHYROIDISM [None]
  - OFF LABEL USE [None]
